FAERS Safety Report 5341547-3 (Version None)
Quarter: 2007Q2

REPORT INFORMATION
  Report Type: 
  Country: None (occurrence: None)
  Receive Date: 20070529
  Receipt Date: 20070529
  Transmission Date: 20071010
  Serious: Yes (Other)
  Sender: FDA-Public Use
  Company Number: None

PATIENT
  Age: 54 Year
  Sex: Female
  Weight: 52.1637 kg

DRUGS (1)
  1. FORTEO [Suspect]
     Indication: OSTEOPOROSIS
     Dosage: 28 (28-PEN) ONCE DAILY 057
     Dates: start: 20070412, end: 20070429

REACTIONS (4)
  - BREAST PAIN [None]
  - HEADACHE [None]
  - PRURITUS [None]
  - RASH [None]
